FAERS Safety Report 9917123 (Version 1)
Quarter: 2014Q1

REPORT INFORMATION
  Report Type: Spontaneous
  Country: US (occurrence: US)
  Receive Date: 20140221
  Receipt Date: 20140221
  Transmission Date: 20141002
  Serious: Yes (Hospitalization)
  Sender: FDA-Public Use
  Company Number: US-JNJFOC-20140208868

PATIENT
  Age: 53 Year
  Sex: Male

DRUGS (1)
  1. INVOKANA [Suspect]
     Indication: DIABETES MELLITUS
     Route: 048
     Dates: start: 201312

REACTIONS (2)
  - Cardiac failure [Unknown]
  - Weight decreased [Unknown]
